FAERS Safety Report 7162574-X (Version None)
Quarter: 2010Q4

REPORT INFORMATION
  Report Type: 
  Country: None (occurrence: None)
  Receive Date: 20101215
  Receipt Date: 20091124
  Transmission Date: 20110411
  Serious: Yes (Hospitalization)
  Sender: FDA-Public Use
  Company Number: NL-PFIZER INC-2009298744

PATIENT
  Age: 44 Year
  Sex: Male

DRUGS (4)
  1. LYRICA [Suspect]
     Indication: EPILEPSY
     Dosage: UNK MG, UNK
     Route: 048
     Dates: start: 20050512
  2. LYRICA [Suspect]
     Dosage: 525MG A DAY
     Dates: start: 20080801
  3. CARBAMAZEPINE [Suspect]
     Indication: EPILEPSY
     Dosage: UNK MG, UNK
     Dates: start: 19950101
  4. CARBAMAZEPINE [Suspect]
     Dosage: UNK
     Dates: start: 20080901

REACTIONS (1)
  - CEREBROVASCULAR ACCIDENT [None]
